FAERS Safety Report 22289884 (Version 1)
Quarter: 2023Q2

REPORT INFORMATION
  Report Type: Spontaneous
  Country: BE (occurrence: BE)
  Receive Date: 20230505
  Receipt Date: 20230505
  Transmission Date: 20230722
  Serious: Yes (Death, Other)
  Sender: FDA-Public Use
  Company Number: BE-AMGEN-BELSP2023076532

PATIENT

DRUGS (1)
  1. PANITUMUMAB [Suspect]
     Active Substance: PANITUMUMAB
     Indication: Colorectal cancer metastatic
     Dosage: UNK
     Route: 065

REACTIONS (8)
  - Death [Fatal]
  - Post procedural complication [Unknown]
  - Pneumonia [Unknown]
  - Septic shock [Unknown]
  - Hepatic failure [Unknown]
  - Respiratory distress [Unknown]
  - Procedural haemorrhage [Unknown]
  - Colonic fistula [Unknown]
